FAERS Safety Report 18691418 (Version 1)
Quarter: 2021Q1

REPORT INFORMATION
  Report Type: Spontaneous
  Country: US (occurrence: US)
  Receive Date: 20210101
  Receipt Date: 20210101
  Transmission Date: 20210419
  Serious: Yes (Other)
  Sender: FDA-Public Use
  Company Number: US-ALKERMES INC.-ALK-2020-005960

PATIENT
  Age: 30 Year
  Sex: Male

DRUGS (1)
  1. VIVITROL [Suspect]
     Active Substance: NALTREXONE
     Indication: PRODUCT USED FOR UNKNOWN INDICATION
     Dosage: 380 MILLIGRAM, QMO
     Route: 030

REACTIONS (14)
  - Blood lactic acid decreased [Not Recovered/Not Resolved]
  - Drug dependence [Unknown]
  - Injection site reaction [Not Recovered/Not Resolved]
  - Injection site pain [Recovered/Resolved]
  - Injection site inflammation [Recovered/Resolved]
  - Myositis [Unknown]
  - Injection site erythema [Not Recovered/Not Resolved]
  - Blood creatine phosphokinase increased [Recovering/Resolving]
  - Embolia cutis medicamentosa [Recovered/Resolved]
  - Injection site discolouration [Recovered/Resolved]
  - Fat redistribution [Recovered/Resolved]
  - Purpura [Recovered/Resolved]
  - Injection site rash [Recovered/Resolved]
  - Inadequate analgesia [Recovered/Resolved]
